FAERS Safety Report 6321382-X (Version None)
Quarter: 2009Q3

REPORT INFORMATION
  Report Type: 
  Country: None (occurrence: None)
  Receive Date: 20090822
  Receipt Date: 20090119
  Transmission Date: 20100115
  Serious: No
  Sender: FDA-Public Use
  Company Number: US-ABBOTT-09P-163-0498917-00

PATIENT
  Sex: Male
  Weight: 102.15 kg

DRUGS (14)
  1. NIASPAN [Suspect]
     Indication: PROPHYLAXIS
     Route: 048
     Dates: start: 20090112
  2. NIASPAN [Suspect]
     Indication: BLOOD CHOLESTEROL INCREASED
  3. NEXIUM [Concomitant]
     Indication: GASTROOESOPHAGEAL REFLUX DISEASE
     Route: 048
  4. REGLAN [Concomitant]
     Indication: GASTROINTESTINAL HYPERMOTILITY
     Route: 048
  5. NEURONTIN [Concomitant]
     Indication: PHANTOM PAIN
     Route: 048
  6. NORVASC [Concomitant]
     Indication: HYPERTENSION
     Route: 048
  7. VASOTEC [Concomitant]
     Indication: HYPERTENSION
     Route: 048
  8. HYDROCHLOROTHIAZIDE [Concomitant]
     Indication: DIURETIC THERAPY
     Dosage: UNKNOWN
     Route: 048
  9. LIPITOR [Concomitant]
     Indication: CARDIAC DISORDER
     Route: 048
  10. HUMALOG [Concomitant]
     Indication: TYPE 1 DIABETES MELLITUS
     Dosage: SLIDING SCALE
     Route: 058
  11. LANTUS [Concomitant]
     Indication: TYPE 1 DIABETES MELLITUS
     Route: 058
     Dates: start: 20090119
  12. LANTUS [Concomitant]
     Route: 058
     Dates: end: 20090118
  13. COUMADIN [Concomitant]
     Indication: ANTICOAGULANT THERAPY
     Route: 048
  14. ASPIRIN [Concomitant]
     Indication: CARDIAC DISORDER
     Route: 048

REACTIONS (2)
  - BLOOD GLUCOSE INCREASED [None]
  - MYALGIA [None]
